FAERS Safety Report 12372752 (Version 3)
Quarter: 2016Q2

REPORT INFORMATION
  Report Type: Spontaneous
  Country: DE (occurrence: DE)
  Receive Date: 20160516
  Receipt Date: 20160601
  Transmission Date: 20160815
  Serious: Yes (Hospitalization)
  Sender: FDA-Public Use
  Company Number: DE-APOTEX-2016AP008198

PATIENT
  Age: 50 Year
  Sex: Male

DRUGS (4)
  1. OLANZAPINE APOTEX [Suspect]
     Active Substance: OLANZAPINE
     Dosage: 20 MG, DAY
     Route: 065
  2. LEVOTHYROXINE SODIUM. [Concomitant]
     Active Substance: LEVOTHYROXINE SODIUM
     Indication: HYPOTHYROIDISM
     Dosage: 50 ?G/DAY
     Route: 065
  3. OLANZAPINE APOTEX [Suspect]
     Active Substance: OLANZAPINE
     Indication: SCHIZOAFFECTIVE DISORDER
     Dosage: 25 MG/DAY
     Route: 065
  4. PROTHIPENDYL [Concomitant]
     Active Substance: PROTHIPENDYL
     Indication: INITIAL INSOMNIA
     Dosage: 80 MG/DAY
     Route: 065

REACTIONS (7)
  - Somnambulism [Recovered/Resolved]
  - Disorientation [Recovered/Resolved]
  - Confusional state [Not Recovered/Not Resolved]
  - Ventricular extrasystoles [Unknown]
  - Hyperhidrosis [Unknown]
  - Amnesia [Unknown]
  - Restlessness [Not Recovered/Not Resolved]
